FAERS Safety Report 20097060 (Version 4)
Quarter: 2022Q1

REPORT INFORMATION
  Report Type: Report from Study
  Country: US (occurrence: US)
  Receive Date: 20211122
  Receipt Date: 20220210
  Transmission Date: 20220424
  Serious: Yes (Other)
  Sender: FDA-Public Use
  Company Number: US-CELGENE-USA-20211104322

PATIENT
  Age: 49 Year
  Sex: Female

DRUGS (1)
  1. ZEPOSIA [Suspect]
     Active Substance: OZANIMOD HYDROCHLORIDE
     Indication: Colitis ulcerative
     Dosage: 0.23- 0.46 MG
     Route: 048
     Dates: start: 20211018

REACTIONS (4)
  - Uterine leiomyoma [Unknown]
  - Uterine cancer [Recovered/Resolved]
  - Illness [Unknown]
  - Toothache [Unknown]

NARRATIVE: CASE EVENT DATE: 20211112
